FAERS Safety Report 7471301-8 (Version None)
Quarter: 2011Q2

REPORT INFORMATION
  Report Type: 
  Country: None (occurrence: None)
  Receive Date: 20110510
  Receipt Date: 20110504
  Transmission Date: 20111010
  Serious: Yes (Other)
  Sender: FDA-Public Use
  Company Number: US-ABBOTT-11P-163-0723612-00

PATIENT
  Sex: Male
  Weight: 116.22 kg

DRUGS (10)
  1. HYDROCODEINE [Concomitant]
     Indication: PRODUCT USED FOR UNKNOWN INDICATION
  2. UNKNOWN BLOOD PRESSURE MEDICATION [Concomitant]
     Indication: PRODUCT USED FOR UNKNOWN INDICATION
  3. CODEINE SULFATE [Concomitant]
     Indication: BACK PAIN
  4. LYRICA [Concomitant]
     Indication: PRODUCT USED FOR UNKNOWN INDICATION
  5. NIASPAN [Suspect]
     Dosage: AT BEDTIME
  6. POWDER FOR INDIGESTION [Concomitant]
     Indication: PRODUCT USED FOR UNKNOWN INDICATION
  7. CODEINE SULFATE [Concomitant]
     Indication: PAIN IN EXTREMITY
  8. ZOCOR [Concomitant]
     Indication: PRODUCT USED FOR UNKNOWN INDICATION
  9. UNKNOWN OVER THE COUNTER MEDICATION [Concomitant]
     Indication: CONSTIPATION
  10. NIASPAN [Suspect]
     Indication: PRODUCT USED FOR UNKNOWN INDICATION
     Dosage: AT BEDTIME
     Dates: start: 20080101

REACTIONS (2)
  - GASTROOESOPHAGEAL REFLUX DISEASE [None]
  - PRURITUS GENERALISED [None]
